FAERS Safety Report 13363861 (Version 1)
Quarter: 2017Q1

REPORT INFORMATION
  Report Type: Spontaneous
  Country: US (occurrence: US)
  Receive Date: 20170323
  Receipt Date: 20170323
  Transmission Date: 20170429
  Serious: No
  Sender: FDA-Public Use
  Company Number: US-PFIZER INC-2017121028

PATIENT
  Sex: Male

DRUGS (1)
  1. ADVIL [Suspect]
     Active Substance: IBUPROFEN

REACTIONS (3)
  - Product taste abnormal [Unknown]
  - Dysgeusia [Unknown]
  - Product odour abnormal [Unknown]
